FAERS Safety Report 7343094-6 (Version None)
Quarter: 2011Q1

REPORT INFORMATION
  Report Type: 
  Country: None (occurrence: None)
  Receive Date: 20110310
  Receipt Date: 20110225
  Transmission Date: 20110831
  Serious: Yes (Other)
  Sender: FDA-Public Use
  Company Number: JP-ELI_LILLY_AND_COMPANY-JP201008005671

PATIENT
  Age: 70 Year
  Sex: Female

DRUGS (3)
  1. CISPLATIN [Concomitant]
     Indication: LUNG ADENOCARCINOMA RECURRENT
     Route: 042
     Dates: start: 20100101
  2. ALIMTA [Suspect]
     Indication: LUNG ADENOCARCINOMA RECURRENT
     Route: 042
     Dates: start: 20100101
  3. AVASTIN [Concomitant]
     Indication: LUNG ADENOCARCINOMA RECURRENT
     Route: 042
     Dates: start: 20100101

REACTIONS (2)
  - RENAL SALT-WASTING SYNDROME [None]
  - INAPPROPRIATE ANTIDIURETIC HORMONE SECRETION [None]
